FAERS Safety Report 5983791-8 (Version None)
Quarter: 2008Q4

REPORT INFORMATION
  Report Type: 
  Country: None (occurrence: None)
  Receive Date: 20081126
  Receipt Date: 20080623
  Transmission Date: 20090506
  Serious: Yes (Other)
  Sender: FDA-Public Use
  Company Number: 2008BH006771

PATIENT
  Age: 35 Year
  Sex: Male

DRUGS (10)
  1. DIANEAL [Suspect]
     Indication: PERITONEAL DIALYSIS
     Dosage: IP
     Route: 033
  2. DIANEAL [Suspect]
     Indication: PERITONEAL DIALYSIS
     Dosage: IP
     Route: 033
  3. POTASSIUM CHLORIDE [Concomitant]
  4. ZEMPLAR [Concomitant]
  5. DIOVAN [Concomitant]
  6. PHOSLO [Concomitant]
  7. TUMS [Concomitant]
  8. MINOXIDIL [Concomitant]
  9. COREG [Concomitant]
  10. SENSIPAR [Concomitant]

REACTIONS (3)
  - DIARRHOEA [None]
  - PERITONEAL DIALYSIS COMPLICATION [None]
  - PERITONITIS BACTERIAL [None]
